FAERS Safety Report 7284110-X (Version None)
Quarter: 2011Q1

REPORT INFORMATION
  Report Type: 
  Country: None (occurrence: None)
  Receive Date: 20110209
  Receipt Date: 20100510
  Transmission Date: 20110831
  Serious: No
  Sender: FDA-Public Use
  Company Number: US-PFIZER INC-2010059078

PATIENT

DRUGS (1)
  1. GEODON [Suspect]

REACTIONS (2)
  - BRUXISM [None]
  - MUSCLE TWITCHING [None]
